FAERS Safety Report 9722704 (Version 1)
Quarter: 2013Q2

REPORT INFORMATION
  Report Type: Spontaneous
  Country: NL (occurrence: None)
  Receive Date: 20130624
  Receipt Date: 20130624
  Transmission Date: 20140414
  Serious: Yes (Congenital Anomaly, Other)
  Sender: FDA-Public Use
  Company Number: 221998

PATIENT
  Sex: Female
  Weight: 3.64 kg

DRUGS (1)
  1. INNOHEP [Suspect]
     Indication: THROMBOSIS
     Dosage: 14000 IU (14000 IU, 1 IN 1
     Route: 058
     Dates: start: 201207

REACTIONS (2)
  - Maternal drugs affecting foetus [None]
  - Congenital cystic kidney disease [None]
